FAERS Safety Report 5660936-0 (Version None)
Quarter: 2008Q1

REPORT INFORMATION
  Report Type: 
  Country: None (occurrence: None)
  Receive Date: 20080311
  Receipt Date: 20080228
  Transmission Date: 20080703
  Serious: Yes (Hospitalization)
  Sender: FDA-Public Use
  Company Number: FR-PFIZER INC-2008019015

PATIENT
  Sex: Female

DRUGS (4)
  1. XANAX [Suspect]
     Route: 048
  2. LEXOMIL [Suspect]
     Route: 048
  3. AVLOCARDYL [Suspect]
     Route: 048
  4. STILNOX [Suspect]
     Route: 048

REACTIONS (2)
  - COMA [None]
  - DRUG TOXICITY [None]
